FAERS Safety Report 6235853-8 (Version None)
Quarter: 2009Q2

REPORT INFORMATION
  Report Type: 
  Country: None (occurrence: None)
  Receive Date: 20090619
  Receipt Date: 20090605
  Transmission Date: 20091009
  Serious: Yes (Other)
  Sender: FDA-Public Use
  Company Number: CH-BAYER-200923196GPV

PATIENT
  Age: 6 Year
  Sex: Male

DRUGS (4)
  1. REFLUDAN [Suspect]
     Indication: ANTICOAGULANT THERAPY
     Dosage: 5.5 MCG/KG/H DOSE GRADUALLY INCREASED TO 46 MCG/KG/H
  2. PLATELETS [Concomitant]
     Indication: THROMBOCYTOPENIA
     Route: 042
  3. HEPARIN [Concomitant]
     Indication: CATHETERISATION CARDIAC
     Dosage: 8 IE/KG/H, DOSE GRADUALLY INCREASED TO 30 IE/KG/H
  4. CALCIUM CITRATE [Concomitant]
     Indication: ANTICOAGULANT THERAPY

REACTIONS (2)
  - CATHETER THROMBOSIS [None]
  - FIBRIN D DIMER INCREASED [None]
